FAERS Safety Report 9899280 (Version 1)
Quarter: 2014Q1

REPORT INFORMATION
  Report Type: Spontaneous
  Country: US (occurrence: US)
  Receive Date: 20140214
  Receipt Date: 20140214
  Transmission Date: 20141002
  Serious: No
  Sender: FDA-Public Use
  Company Number: US-TEVA-390244USA

PATIENT
  Sex: Male

DRUGS (5)
  1. METHOTREXATE [Suspect]
     Indication: PSORIATIC ARTHROPATHY
     Dosage: 25MG/1ML/WK
     Dates: start: 2002
  2. ENBREL [Concomitant]
     Dosage: 7.1429 MILLIGRAM DAILY;
     Route: 058
  3. CELEBREX [Concomitant]
     Dosage: 200 MILLIGRAM DAILY;
  4. FOLIC ACID [Concomitant]
     Dosage: 2 MILLIGRAM DAILY;
  5. PRAVACOL [Concomitant]
     Dosage: 40 MILLIGRAM DAILY;

REACTIONS (4)
  - Pain in extremity [Unknown]
  - Muscle spasms [Unknown]
  - Myalgia [Unknown]
  - Arthralgia [Unknown]
